FAERS Safety Report 4916832-7 (Version None)
Quarter: 2006Q1

REPORT INFORMATION
  Report Type: 
  Country: None (occurrence: None)
  Receive Date: 20060220
  Receipt Date: 20031006
  Transmission Date: 20060701
  Serious: Yes (Life-Threatening, Other)
  Sender: FDA-Public Use
  Company Number: US-ABBOTT-03H-163-0235960-00

PATIENT
  Sex: Male
  Weight: 109 kg

DRUGS (22)
  1. ULTANE (SEVOFLURANE) LIQUID FOR INHALATION USP 250ML LIQUID [Suspect]
     Indication: ANAESTHESIA
     Route: 055
  2. ULTANE (SEVOFLURANE) LIQUID FOR INHALATION USP 250ML LIQUID [Suspect]
     Route: 055
  3. ULTANE (SEVOFLURANE) LIQUID FOR INHALATION USP 250ML LIQUID [Suspect]
     Route: 055
  4. ULTANE (SEVOFLURANE) LIQUID FOR INHALATION USP 250ML LIQUID [Suspect]
     Route: 055
  5. ISOFLURANE [Suspect]
     Indication: ANAESTHESIA
     Route: 055
     Dates: start: 20031006, end: 20031006
  6. FENTANYL [Concomitant]
     Indication: ANAESTHESIA
     Route: 042
     Dates: start: 20031006, end: 20031006
  7. FENTANYL [Concomitant]
     Indication: INDUCTION OF ANAESTHESIA
     Route: 042
     Dates: start: 20031006, end: 20031006
  8. SUXAMETHONIUM CHLORIDE [Concomitant]
     Indication: INTUBATION
     Route: 042
     Dates: start: 20031006, end: 20031006
  9. NITROUS OXIDE W/ OXYGEN [Concomitant]
     Indication: MAINTENANCE OF ANAESTHESIA
     Dosage: 50-70%
     Route: 055
     Dates: start: 20031006, end: 20031006
  10. PROPOFOL [Concomitant]
     Indication: ANAESTHESIA
     Route: 042
     Dates: start: 20031006, end: 20031006
  11. PROPOFOL [Concomitant]
     Indication: INDUCTION OF ANAESTHESIA
     Route: 042
     Dates: start: 20031006, end: 20031006
  12. ANTIBIOTICS [Concomitant]
     Indication: NOSOCOMIAL INFECTION
     Dates: start: 20031010
  13. MIDAZOLAM [Concomitant]
     Indication: DRUG USE FOR UNKNOWN INDICATION
     Route: 042
     Dates: start: 20031006, end: 20031006
  14. METOPROLOL [Concomitant]
     Indication: DRUG USE FOR UNKNOWN INDICATION
  15. NAPROXEN [Concomitant]
     Indication: DRUG USE FOR UNKNOWN INDICATION
  16. SIMVASTATIN [Concomitant]
     Indication: DRUG USE FOR UNKNOWN INDICATION
  17. CHLORTHALIDONE [Concomitant]
     Indication: DRUG USE FOR UNKNOWN INDICATION
  18. LIDOCAINE [Concomitant]
     Indication: INDUCTION OF ANAESTHESIA
     Route: 042
     Dates: start: 20031006, end: 20031006
  19. OXYGEN [Concomitant]
     Indication: ANAESTHESIA
     Route: 055
     Dates: start: 20031006, end: 20031006
  20. CEDAX [Concomitant]
     Indication: SINUSITIS
     Route: 048
     Dates: start: 20031104
  21. MUCINEX [Concomitant]
     Indication: SINUSITIS
     Route: 048
     Dates: start: 20031104
  22. FLUTICASONE PROPIONATE [Concomitant]
     Indication: SINUSITIS
     Route: 055
     Dates: start: 20031104

REACTIONS (14)
  - ACUTE RESPIRATORY DISTRESS SYNDROME [None]
  - BRONCHIAL INJURY [None]
  - BURN OF INTERNAL ORGANS [None]
  - CARBOXYHAEMOGLOBINAEMIA [None]
  - CHEMICAL INJURY [None]
  - CHRONIC SINUSITIS [None]
  - DYSPHONIA [None]
  - ERYTHEMA [None]
  - HAEMORRHAGE [None]
  - INCREASED BRONCHIAL SECRETION [None]
  - LIGHT ANAESTHESIA [None]
  - LUNG INFILTRATION [None]
  - NECROSIS [None]
  - NOSOCOMIAL INFECTION [None]
